FAERS Safety Report 8776403 (Version 1)
Quarter: 2012Q4

REPORT INFORMATION
  Report Type: 
  Country: NL (occurrence: NL)
  Receive Date: 20120910
  Receipt Date: 20120910
  Transmission Date: 20130627
  Serious: Yes (Hospitalization, Other)
  Sender: FDA-Public Use
  Company Number: PHHY2012NL078070

PATIENT
  Age: 86 Year
  Sex: Male

DRUGS (3)
  1. ZOMETA [Suspect]
     Indication: PROSTATE CANCER METASTATIC
     Dosage: 4 mg/100 ml, 1x per 28 days
  2. ZOMETA [Suspect]
     Dosage: 4 mg/100 ml, 1x per 28 days
     Dates: start: 20111021
  3. ZOMETA [Suspect]
     Dosage: 4 mg/100 ml, 1x per 28 days
     Dates: start: 20120906

REACTIONS (2)
  - Diverticulum intestinal [Recovered/Resolved]
  - Constipation [Recovered/Resolved]
